FAERS Safety Report 14618096 (Version 1)
Quarter: 2018Q1

REPORT INFORMATION
  Report Type: Spontaneous
  Country: US (occurrence: US)
  Receive Date: 20180309
  Receipt Date: 20180309
  Transmission Date: 20180509
  Serious: No
  Sender: FDA-Public Use
  Company Number: US-PTC THERAPEUTICS, INC.-US-2017PTC001616

PATIENT

DRUGS (7)
  1. EMFLAZA [Suspect]
     Active Substance: DEFLAZACORT
     Indication: DUCHENNE MUSCULAR DYSTROPHY
     Dosage: 18 MG, QD
     Route: 048
     Dates: start: 20171002
  2. FERROUS SULFATE. [Concomitant]
     Active Substance: FERROUS SULFATE
     Indication: PRODUCT USED FOR UNKNOWN INDICATION
  3. MELATONIN [Concomitant]
     Active Substance: MELATONIN
     Indication: PRODUCT USED FOR UNKNOWN INDICATION
  4. BISACODYL. [Concomitant]
     Active Substance: BISACODYL
     Indication: PRODUCT USED FOR UNKNOWN INDICATION
  5. EMFLAZA [Suspect]
     Active Substance: DEFLAZACORT
     Dosage: UNK
     Dates: start: 201610
  6. GYNOBIOTIC [Concomitant]
     Indication: PRODUCT USED FOR UNKNOWN INDICATION
  7. SENNA                              /00142201/ [Concomitant]
     Active Substance: SENNA LEAF
     Indication: PRODUCT USED FOR UNKNOWN INDICATION

REACTIONS (2)
  - Night sweats [Unknown]
  - Hydrocele [Unknown]

NARRATIVE: CASE EVENT DATE: 201712
